FAERS Safety Report 25676491 (Version 1)
Quarter: 2025Q3

REPORT INFORMATION
  Report Type: Report from Study
  Country: CA (occurrence: CA)
  Receive Date: 20250813
  Receipt Date: 20250813
  Transmission Date: 20251020
  Serious: Yes (Other)
  Sender: ABBVIE
  Company Number: CA-ABBVIE-6412622

PATIENT
  Sex: Male

DRUGS (1)
  1. LUPRON [Suspect]
     Active Substance: LEUPROLIDE ACETATE
     Indication: Prostate cancer
     Dosage: 30 MG PRE-FILLED SYRINGE
     Route: 030
     Dates: start: 20241205

REACTIONS (4)
  - Peripheral swelling [Unknown]
  - Pain in extremity [Unknown]
  - Localised infection [Unknown]
  - Poor peripheral circulation [Unknown]
